FAERS Safety Report 19204947 (Version 1)
Quarter: 2021Q2

REPORT INFORMATION
  Report Type: Spontaneous
  Country: US (occurrence: US)
  Receive Date: 20210430
  Receipt Date: 20210430
  Transmission Date: 20210717
  Serious: No
  Sender: FDA-Public Use
  Company Number: None

PATIENT
  Age: 70 Year
  Sex: Female
  Weight: 51.75 kg

DRUGS (5)
  1. MOBIC [Concomitant]
     Active Substance: MELOXICAM
  2. EPSOM SALT [Concomitant]
     Active Substance: MAGNESIUM SULFATE
  3. OXYGEN. [Concomitant]
     Active Substance: OXYGEN
  4. ERGOMAR [Concomitant]
     Active Substance: ERGOTAMINE TARTRATE
  5. UBRELVY [Suspect]
     Active Substance: UBROGEPANT
     Indication: MIGRAINE
     Dosage: ?          QUANTITY:1 TABLET(S);?
     Route: 048
     Dates: start: 20210104, end: 20210315

REACTIONS (2)
  - Medication overuse headache [None]
  - Therapy cessation [None]

NARRATIVE: CASE EVENT DATE: 20210315
